FAERS Safety Report 16323323 (Version 2)
Quarter: 2019Q2

REPORT INFORMATION
  Report Type: Report from Study
  Country: None (occurrence: US)
  Receive Date: 20190517
  Receipt Date: 20190523
  Transmission Date: 20190711
  Serious: Yes (Hospitalization)
  Sender: FDA-Public Use
  Company Number: US-ABBVIE-19K-163-2785797-00

PATIENT
  Age: 63 Year
  Sex: Male
  Weight: 79.45 kg

DRUGS (1)
  1. HUMIRA [Suspect]
     Active Substance: ADALIMUMAB
     Indication: PSORIATIC ARTHROPATHY
     Route: 058
     Dates: start: 2014

REACTIONS (9)
  - Back injury [Recovering/Resolving]
  - Pneumonia [Recovered/Resolved]
  - Oedema [Unknown]
  - Wound infection bacterial [Not Recovered/Not Resolved]
  - Pneumonia [Recovered/Resolved]
  - Buttock injury [Recovering/Resolving]
  - Pneumonia [Recovered/Resolved]
  - Limb injury [Recovering/Resolving]
  - Skin wound [Recovering/Resolving]

NARRATIVE: CASE EVENT DATE: 2017
